FAERS Safety Report 8434341-8 (Version None)
Quarter: 2012Q2

REPORT INFORMATION
  Report Type: 
  Country: None (occurrence: None)
  Receive Date: 20120613
  Receipt Date: 20120607
  Transmission Date: 20120825
  Serious: Yes (Hospitalization)
  Sender: FDA-Public Use
  Company Number: JP-MERCK-1206USA01925

PATIENT
  Age: 99 Year
  Sex: Female

DRUGS (4)
  1. METFORMIN HCL [Concomitant]
     Route: 048
     Dates: start: 20111014, end: 20120524
  2. JANUVIA [Suspect]
     Indication: DIABETES MELLITUS
     Route: 048
     Dates: start: 20111014, end: 20120524
  3. GLUFAST [Concomitant]
     Route: 048
     Dates: start: 20111014, end: 20120524
  4. INSULIN [Concomitant]
     Dosage: DOSAGE IS UNCERTAIN DURING A DAY
     Route: 058

REACTIONS (3)
  - GASTROOESOPHAGEAL REFLUX DISEASE [None]
  - OESOPHAGEAL STENOSIS [None]
  - PNEUMONIA ASPIRATION [None]
